FAERS Safety Report 16841085 (Version 1)
Quarter: 2019Q3

REPORT INFORMATION
  Report Type: Spontaneous
  Country: US (occurrence: US)
  Receive Date: 20190923
  Receipt Date: 20190923
  Transmission Date: 20191005
  Serious: No
  Sender: FDA-Public Use
  Company Number: US-SA-2019SA259606

PATIENT
  Sex: Male
  Weight: 120.18 kg

DRUGS (7)
  1. VENTOLIN [Concomitant]
     Active Substance: ALBUTEROL SULFATE
  2. COLCRYS [Concomitant]
     Active Substance: COLCHICINE
  3. INDOMETACIN [Concomitant]
     Active Substance: INDOMETHACIN
  4. ALLOPURINOL. [Concomitant]
     Active Substance: ALLOPURINOL
  5. CALCIUM MAGNESIUM [CALCIUM;MAGNESIUM] [Concomitant]
  6. DUPIXENT [Suspect]
     Active Substance: DUPILUMAB
     Indication: DERMATITIS ATOPIC
     Dosage: 300 MG, QOW
     Route: 058
  7. DUPIXENT [Suspect]
     Active Substance: DUPILUMAB
     Indication: ASTHMA

REACTIONS (1)
  - Secretion discharge [Unknown]
